FAERS Safety Report 5807865-7 (Version None)
Quarter: 2008Q3

REPORT INFORMATION
  Report Type: 
  Country: None (occurrence: None)
  Receive Date: 20080711
  Receipt Date: 20080623
  Transmission Date: 20090109
  Serious: No
  Sender: FDA-Public Use
  Company Number: US-BOEHRINGER INGELHEIM GMBH, GERMANY-2008-BP-09764BP

PATIENT
  Age: 56 Year
  Sex: Male

DRUGS (1)
  1. MIRAPEX [Suspect]
     Indication: BIPOLAR DISORDER
     Route: 048
     Dates: start: 20080401, end: 20080601

REACTIONS (1)
  - ERYTHEMA NODOSUM [None]
